FAERS Safety Report 5484821-2 (Version None)
Quarter: 2007Q4

REPORT INFORMATION
  Report Type: 
  Country: None (occurrence: None)
  Receive Date: 20071010
  Receipt Date: 20070926
  Transmission Date: 20080405
  Serious: Yes (Life-Threatening)
  Sender: FDA-Public Use
  Company Number: GXKR2007BR08359

PATIENT
  Age: 64 Year
  Sex: Male

DRUGS (3)
  1. CAPECITABINE (NGX)(CAPECITABINE) UNKNOWN [Suspect]
     Indication: SQUAMOUS CELL CARCINOMA
     Dosage: 1000 MG/M2/DAY, 4 CYCLES, ORAL
     Route: 048
     Dates: start: 20030701
  2. DOCETAXEL [Suspect]
     Indication: SQUAMOUS CELL CARCINOMA
     Dosage: 70 MG/M2, DAY 1, 4 CYCLES, INTRAVENOUS
     Route: 042
     Dates: start: 20030701
  3. CARBOPLATIN [Suspect]
     Indication: SQUAMOUS CELL CARCINOMA
     Dosage: AREA UNDER CURVE 5, DAY 1, 4 CYCLES, INTRAVENOUS
     Route: 042
     Dates: start: 20030701

REACTIONS (29)
  - ACUTE RESPIRATORY DISTRESS SYNDROME [None]
  - CARDIAC FAILURE [None]
  - CATHETER RELATED INFECTION [None]
  - CIRCULATORY COLLAPSE [None]
  - DIALYSIS [None]
  - DISSEMINATED INTRAVASCULAR COAGULATION [None]
  - DYSPHAGIA [None]
  - HAEMODYNAMIC INSTABILITY [None]
  - LOCALISED OEDEMA [None]
  - LUNG INFECTION [None]
  - LYMPHADENOPATHY [None]
  - MALAISE [None]
  - MUCOSAL INFLAMMATION [None]
  - NECROTISING FASCIITIS [None]
  - NEPHRITIS INTERSTITIAL [None]
  - ORGAN FAILURE [None]
  - OROPHARYNGEAL SWELLING [None]
  - PHARYNGOLARYNGEAL PAIN [None]
  - PYREXIA [None]
  - RADIATION SKIN INJURY [None]
  - RENAL FAILURE ACUTE [None]
  - RENAL TUBULAR NECROSIS [None]
  - RESPIRATORY TRACT INFECTION [None]
  - SEPTIC SHOCK [None]
  - SKIN GRAFT [None]
  - STOMATITIS NECROTISING [None]
  - STREPTOCOCCAL BACTERAEMIA [None]
  - STREPTOCOCCAL INFECTION [None]
  - TRACHEOSTOMY [None]
